FAERS Safety Report 9361419 (Version 1)
Quarter: 2013Q2

REPORT INFORMATION
  Report Type: Spontaneous
  Country: FR (occurrence: FR)
  Receive Date: 20130621
  Receipt Date: 20130621
  Transmission Date: 20140414
  Serious: Yes (Death)
  Sender: FDA-Public Use
  Company Number: FR-TEVA-413564ISR

PATIENT
  Age: 85 Year
  Sex: Male

DRUGS (1)
  1. FUROSEMIDE TEVA 40 MG [Suspect]

REACTIONS (2)
  - Death [Fatal]
  - Somnolence [Unknown]
